FAERS Safety Report 11686487 (Version 2)
Quarter: 2015Q4

REPORT INFORMATION
  Report Type: Spontaneous
  Country: GB (occurrence: GB)
  Receive Date: 20151030
  Receipt Date: 20151111
  Transmission Date: 20160304
  Serious: Yes (Other)
  Sender: FDA-Public Use
  Company Number: GB-009507513-1510GBR015120

PATIENT
  Age: 68 Year
  Sex: Female
  Weight: 56.24 kg

DRUGS (1)
  1. ALENDRONATE SODIUM. [Suspect]
     Active Substance: ALENDRONATE SODIUM
     Indication: OSTEOPOROSIS
     Dosage: 1 DOSE, WEEKLY ONCE
     Route: 048

REACTIONS (2)
  - Pruritus genital [Recovered/Resolved]
  - Alopecia [Recovered/Resolved]
